FAERS Safety Report 10671766 (Version 1)
Quarter: 2014Q4

REPORT INFORMATION
  Report Type: Spontaneous
  Country: US (occurrence: None)
  Receive Date: 20141222
  Receipt Date: 20141222
  Transmission Date: 20150529
  Serious: Yes (Other)
  Sender: FDA-Public Use
  Company Number: None

PATIENT
  Age: 42 Year
  Sex: Female
  Weight: 81.65 kg

DRUGS (1)
  1. BACTRIM [Suspect]
     Active Substance: SULFAMETHOXAZOLE\TRIMETHOPRIM
     Indication: CYSTITIS
     Dosage: 1 TABLET BY MOUTH 2 A DAT  TWICE DAILY TAKEN BY MOUTH
     Route: 048
     Dates: start: 20141209, end: 20141213

REACTIONS (3)
  - Dry skin [None]
  - Pyrexia [None]
  - Renal pain [None]

NARRATIVE: CASE EVENT DATE: 20141205
